FAERS Safety Report 8015990-8 (Version None)
Quarter: 2011Q4

REPORT INFORMATION
  Report Type: 
  Country: None (occurrence: None)
  Receive Date: 20111230
  Receipt Date: 20111230
  Transmission Date: 20120403
  Serious: Yes (Hospitalization, Other)
  Sender: FDA-Public Use
  Company Number: None

PATIENT
  Age: 32 Year
  Sex: Female
  Weight: 95.254 kg

DRUGS (1)
  1. CYMBALTA [Suspect]
     Indication: BIPOLAR I DISORDER
     Dosage: 60MG
     Route: 048
     Dates: start: 20110401, end: 20111115

REACTIONS (12)
  - BIPOLAR DISORDER [None]
  - PAIN [None]
  - CRYING [None]
  - DRUG WITHDRAWAL SYNDROME [None]
  - CONDITION AGGRAVATED [None]
  - DIZZINESS [None]
  - LACERATION [None]
  - SUICIDAL IDEATION [None]
  - VERTIGO [None]
  - DISORIENTATION [None]
  - INTENTIONAL SELF-INJURY [None]
  - SCAR [None]
